FAERS Safety Report 22298090 (Version 1)
Quarter: 2023Q2

REPORT INFORMATION
  Report Type: Spontaneous
  Country: CN (occurrence: CN)
  Receive Date: 20230509
  Receipt Date: 20230509
  Transmission Date: 20230721
  Serious: Yes (Other)
  Sender: FDA-Public Use
  Company Number: CN-JNJFOC-20230503587

PATIENT
  Age: 33 Year
  Sex: Female
  Weight: 58 kg

DRUGS (2)
  1. RISPERDAL [Suspect]
     Active Substance: RISPERIDONE
     Indication: Schizophrenia
     Route: 048
     Dates: start: 20230111, end: 20230424
  2. OXCARBAZEPINE [Suspect]
     Active Substance: OXCARBAZEPINE
     Indication: Epilepsy
     Route: 048
     Dates: start: 20230126, end: 20230424

REACTIONS (1)
  - Hepatic failure [Recovering/Resolving]

NARRATIVE: CASE EVENT DATE: 20230304
